FAERS Safety Report 20128088 (Version 1)
Quarter: 2021Q4

REPORT INFORMATION
  Report Type: Report from Study
  Country: TR (occurrence: TR)
  Receive Date: 20211129
  Receipt Date: 20211129
  Transmission Date: 20220303
  Serious: Yes (Death, Other)
  Sender: FDA-Public Use
  Company Number: TR-ABBVIE-19S-161-2804183-00

PATIENT
  Sex: Male
  Weight: 62 kg

DRUGS (10)
  1. CARBIDOPA\LEVODOPA [Suspect]
     Active Substance: CARBIDOPA\LEVODOPA
     Indication: Parkinson^s disease
     Dosage: MORNING DOSE(ML):5.50??CONTINUES DOSE(ML):3.20??EXTRA DOSE(ML):1.50
     Route: 050
     Dates: end: 20190530
  2. CARBIDOPA\LEVODOPA [Suspect]
     Active Substance: CARBIDOPA\LEVODOPA
     Dosage: MORNING DOSE(ML):5.50??CONTINUES DOSE(ML):3.50??EXTRA DOSE(ML):1.50
     Route: 050
     Dates: start: 20190530
  3. CLOZAPINE [Concomitant]
     Active Substance: CLOZAPINE
     Indication: Psychiatric disorder prophylaxis
     Route: 048
     Dates: start: 20180524
  4. TOVIAZ [Concomitant]
     Active Substance: FESOTERODINE FUMARATE
     Indication: Incontinence
     Route: 048
     Dates: start: 20180111
  5. FOLIC ACID [Concomitant]
     Active Substance: FOLIC ACID
     Indication: Vitamin supplementation
     Route: 048
     Dates: start: 2017
  6. CYANOCOBALAMIN\PYRIDOXINE\THIAMINE [Concomitant]
     Active Substance: CYANOCOBALAMIN\PYRIDOXINE\THIAMINE
     Indication: Vitamin supplementation
     Route: 048
     Dates: start: 2017
  7. BENSERAZIDE HYDROCHLORIDE\LEVODOPA [Concomitant]
     Active Substance: BENSERAZIDE HYDROCHLORIDE\LEVODOPA
     Indication: Parkinson^s disease
     Dosage: 1X3
     Route: 048
     Dates: start: 2014
  8. STALEVO [Concomitant]
     Active Substance: CARBIDOPA\ENTACAPONE\LEVODOPA
     Indication: Parkinson^s disease
     Dosage: AS NEEDED
     Route: 048
     Dates: start: 20171027
  9. PAROXETINE HYDROCHLORIDE [Concomitant]
     Active Substance: PAROXETINE HYDROCHLORIDE
     Indication: Parkinson^s disease
     Route: 048
     Dates: start: 20180111
  10. PAROXETINE HYDROCHLORIDE [Concomitant]
     Active Substance: PAROXETINE HYDROCHLORIDE
     Indication: Parkinson^s disease

REACTIONS (2)
  - Pulmonary embolism [Fatal]
  - Bradykinesia [Unknown]
